FAERS Safety Report 8111967-2 (Version None)
Quarter: 2012Q1

REPORT INFORMATION
  Report Type: 
  Country: None (occurrence: None)
  Receive Date: 20120203
  Receipt Date: 20111116
  Transmission Date: 20120608
  Serious: Yes (Hospitalization, Other)
  Sender: FDA-Public Use
  Company Number: US-GLAXOSMITHKLINE-A0953751A

PATIENT
  Age: 81 Year
  Sex: Female

DRUGS (2)
  1. HEPARIN [Concomitant]
  2. ARIXTRA [Suspect]
     Indication: DEEP VEIN THROMBOSIS
     Route: 058
     Dates: start: 20111001

REACTIONS (1)
  - THROMBOCYTOPENIA [None]
